FAERS Safety Report 16856406 (Version 1)
Quarter: 2019Q3

REPORT INFORMATION
  Report Type: Report from Study
  Country: DE (occurrence: DE)
  Receive Date: 20190926
  Receipt Date: 20190926
  Transmission Date: 20191005
  Serious: Yes (Death, Hospitalization, Other)
  Sender: FDA-Public Use
  Company Number: DE-MYLANLABS-2019M1089637

PATIENT
  Age: 61 Year
  Sex: Female
  Weight: 92 kg

DRUGS (10)
  1. CITALOPRAM [Suspect]
     Active Substance: CITALOPRAM HYDROBROMIDE
     Indication: DEPRESSION
     Dosage: UNK
     Route: 048
  2. PACLITAXEL. [Suspect]
     Active Substance: PACLITAXEL
     Indication: BREAST CANCER METASTATIC
     Dosage: MOST RECENT DOSE PRIOR TO SAE 25/OCT/2011
     Route: 042
  3. FLUOROURACIL. [Concomitant]
     Active Substance: FLUOROURACIL
     Dosage: UNK
  4. BEVACIZUMAB. [Suspect]
     Active Substance: BEVACIZUMAB
     Indication: BREAST CANCER METASTATIC
     Dosage: MOSTRECENT DOSE PRIOR TO SAE 25/OCT/2011
     Route: 042
     Dates: start: 20110719
  5. EPIRUBICIN [Concomitant]
     Active Substance: EPIRUBICIN
     Dosage: UNK
  6. RANITIDINE. [Suspect]
     Active Substance: RANITIDINE
     Indication: NAUSEA
     Dosage: UNK
     Route: 048
  7. MCP [Suspect]
     Active Substance: METOCLOPRAMIDE HYDROCHLORIDE
     Indication: NAUSEA
     Dosage: UNK
     Route: 048
  8. CYCLOPHOSPHAMIDE. [Concomitant]
     Active Substance: CYCLOPHOSPHAMIDE
     Dosage: UNK
  9. ANASTROZOLE. [Concomitant]
     Active Substance: ANASTROZOLE
     Dosage: UNK
  10. TAXOL [Concomitant]
     Active Substance: PACLITAXEL
     Indication: BREAST CANCER METASTATIC
     Dosage: UNK
     Route: 065
     Dates: start: 20110719

REACTIONS (5)
  - Gastrointestinal necrosis [Unknown]
  - Ischaemia [Unknown]
  - Acute abdomen [Unknown]
  - Abdominal pain [Unknown]
  - Intestinal ischaemia [Fatal]
